FAERS Safety Report 5111612-4 (Version None)
Quarter: 2006Q3

REPORT INFORMATION
  Report Type: 
  Country: None (occurrence: None)
  Receive Date: 20060922
  Receipt Date: 20060831
  Transmission Date: 20061208
  Serious: Yes (Hospitalization)
  Sender: FDA-Public Use
  Company Number: PHHO2006DE14478

PATIENT
  Age: 81 Year
  Sex: Male
  Weight: 72 kg

DRUGS (4)
  1. ZOLEDRONATE [Suspect]
     Indication: METASTASES TO BONE
     Dosage: 4MG, EVERY THREE WEEKS
     Route: 042
     Dates: start: 20050609, end: 20060720
  2. CALCIUM GLUCONATE [Concomitant]
     Indication: NUTRITIONAL SUPPORT
  3. VITAMIN D [Concomitant]
     Indication: NUTRITIONAL SUPPORT
  4. NOVAMINSULFON [Concomitant]
     Indication: BONE PAIN

REACTIONS (3)
  - BONE DEBRIDEMENT [None]
  - MYOSITIS OSSIFICANS [None]
  - SEQUESTRECTOMY [None]
